FAERS Safety Report 12970893 (Version 1)
Quarter: 2016Q4

REPORT INFORMATION
  Report Type: Spontaneous
  Country: US (occurrence: US)
  Receive Date: 20161123
  Receipt Date: 20161123
  Transmission Date: 20170207
  Serious: No
  Sender: FDA-Public Use
  Company Number: US-ELI_LILLY_AND_COMPANY-US201611008022

PATIENT
  Age: 49 Year
  Sex: Male

DRUGS (10)
  1. HUMALOG [Suspect]
     Active Substance: INSULIN LISPRO
     Dosage: ON A SLIDING SCALE, ONCE DAILY AND AS NEEDED
     Route: 065
     Dates: start: 20160515
  2. METFORMIN [Concomitant]
     Active Substance: METFORMIN HYDROCHLORIDE
  3. GLYXAMBI [Concomitant]
     Active Substance: EMPAGLIFLOZIN\LINAGLIPTIN
  4. HUMALOG [Suspect]
     Active Substance: INSULIN LISPRO
     Indication: TYPE 2 DIABETES MELLITUS
     Dosage: ON A SLIDING SCALE, ONCE DAILY AND AS NEEDED
     Route: 065
     Dates: start: 20160515
  5. GLIMEPIRIDE. [Concomitant]
     Active Substance: GLIMEPIRIDE
  6. HUMALOG [Suspect]
     Active Substance: INSULIN LISPRO
     Dosage: ON A SLIDING SCALE, ONCE DAILY AND AS NEEDED
     Route: 065
     Dates: start: 20160515
  7. HUMALOG [Suspect]
     Active Substance: INSULIN LISPRO
     Dosage: ON A SLIDING SCALE, ONCE DAILY AND AS NEEDED
     Route: 065
     Dates: start: 20160515
  8. REBOXETINE [Concomitant]
     Active Substance: REBOXETINE
  9. LANTUS [Concomitant]
     Active Substance: INSULIN GLARGINE
  10. LISINOPRIL. [Concomitant]
     Active Substance: LISINOPRIL
     Indication: BLOOD PRESSURE ABNORMAL

REACTIONS (8)
  - Blood glucose increased [Recovered/Resolved]
  - Proteinuria [Not Recovered/Not Resolved]
  - Incorrect product storage [Unknown]
  - Incorrect drug administration duration [Unknown]
  - Blood count abnormal [Unknown]
  - Injection site pain [Not Recovered/Not Resolved]
  - Injection site rash [Not Recovered/Not Resolved]
  - Renal disorder [Not Recovered/Not Resolved]

NARRATIVE: CASE EVENT DATE: 201606
